FAERS Safety Report 6245053-3 (Version None)
Quarter: 2009Q2

REPORT INFORMATION
  Report Type: 
  Country: None (occurrence: None)
  Receive Date: 20090625
  Receipt Date: 20090618
  Transmission Date: 20091009
  Serious: Yes (Hospitalization)
  Sender: FDA-Public Use
  Company Number: US-ELI_LILLY_AND_COMPANY-US200906004446

PATIENT
  Sex: Female

DRUGS (2)
  1. FORTEO [Suspect]
  2. ANALGESICS [Concomitant]

REACTIONS (1)
  - BACK DISORDER [None]
